FAERS Safety Report 17554129 (Version 8)
Quarter: 2025Q1

REPORT INFORMATION
  Report Type: Report from Study
  Country: US (occurrence: US)
  Receive Date: 20200318
  Receipt Date: 20250128
  Transmission Date: 20250409
  Serious: Yes (Other)
  Sender: TAKEDA
  Company Number: US-SHIRE-US202008284

PATIENT
  Sex: Female

DRUGS (7)
  1. HUMAN IMMUNOGLOBULIN G\HYALURONIDASE RECOMBINANT HUMAN [Suspect]
     Active Substance: HUMAN IMMUNOGLOBULIN G\HYALURONIDASE (HUMAN RECOMBINANT)
     Indication: Primary immunodeficiency syndrome
  2. HUMAN IMMUNOGLOBULIN G\HYALURONIDASE RECOMBINANT HUMAN [Suspect]
     Active Substance: HUMAN IMMUNOGLOBULIN G\HYALURONIDASE (HUMAN RECOMBINANT)
  3. HUMAN IMMUNOGLOBULIN G\HYALURONIDASE RECOMBINANT HUMAN [Suspect]
     Active Substance: HUMAN IMMUNOGLOBULIN G\HYALURONIDASE (HUMAN RECOMBINANT)
  4. HUMAN IMMUNOGLOBULIN G\HYALURONIDASE RECOMBINANT HUMAN [Suspect]
     Active Substance: HUMAN IMMUNOGLOBULIN G\HYALURONIDASE (HUMAN RECOMBINANT)
  5. HUMAN IMMUNOGLOBULIN G\HYALURONIDASE RECOMBINANT HUMAN [Suspect]
     Active Substance: HUMAN IMMUNOGLOBULIN G\HYALURONIDASE (HUMAN RECOMBINANT)
     Dosage: 25 GRAM, MONTHLY
  6. HUMAN IMMUNOGLOBULIN G\HYALURONIDASE RECOMBINANT HUMAN [Suspect]
     Active Substance: HUMAN IMMUNOGLOBULIN G\HYALURONIDASE (HUMAN RECOMBINANT)
     Dosage: UNK UNK, MONTHLY
  7. PROMETHAZINE [Concomitant]
     Active Substance: PROMETHAZINE HYDROCHLORIDE
     Indication: Product used for unknown indication

REACTIONS (20)
  - Skin cancer [Unknown]
  - Hypersomnia [Unknown]
  - Device issue [Unknown]
  - Product dose omission issue [Unknown]
  - Sinusitis [Unknown]
  - Asthma [Unknown]
  - Malaise [Unknown]
  - Lethargy [Unknown]
  - Thyroid mass [Unknown]
  - COVID-19 [Unknown]
  - Drug hypersensitivity [Unknown]
  - Peripheral swelling [Unknown]
  - Cardiac disorder [Unknown]
  - Injection site erythema [Unknown]
  - Respiratory disorder [Unknown]
  - Seasonal allergy [Unknown]
  - Animal bite [Unknown]
  - Inappropriate schedule of product administration [Unknown]
  - Nausea [Unknown]
  - Dyspnoea [Unknown]
